FAERS Safety Report 4975590-0 (Version None)
Quarter: 2006Q2

REPORT INFORMATION
  Report Type: 
  Country: None (occurrence: None)
  Receive Date: 20060411
  Receipt Date: 20060405
  Transmission Date: 20061013
  Serious: Yes (Other)
  Sender: FDA-Public Use
  Company Number: DEWYE501323MAR06

PATIENT
  Age: 42 Year
  Sex: Female

DRUGS (4)
  1. VENLAFAXINE HCL [Suspect]
     Indication: SCHIZOAFFECTIVE DISORDER
     Dosage: 75 MG 1X PER 1 DAY, ORAL
     Route: 048
  2. QUILONUM - SLOW RELEASE          (LITHIUM CARBONATE) [Suspect]
     Indication: SCHIZOAFFECTIVE DISORDER
     Dosage: 2 TABLETS PER DAY, ORAL
     Route: 048
  3. ZYPREXA [Suspect]
     Indication: SCHIZOAFFECTIVE DISORDER
     Dosage: 5 MG 1X PER 1 DAY, ORAL
     Route: 048
  4. CITALOPRAM HYDROBROMIDE [Concomitant]

REACTIONS (3)
  - ANGINA PECTORIS [None]
  - BLOOD TRIGLYCERIDES INCREASED [None]
  - HIGH DENSITY LIPOPROTEIN DECREASED [None]
